FAERS Safety Report 17816679 (Version 5)
Quarter: 2020Q3

REPORT INFORMATION
  Report Type: Report from Study
  Country: HU (occurrence: HU)
  Receive Date: 20200522
  Receipt Date: 20200902
  Transmission Date: 20201102
  Serious: Yes (Hospitalization)
  Sender: FDA-Public Use
  Company Number: NVSC2020HU126392

PATIENT
  Age: 2 Year
  Sex: Male
  Weight: 7 kg

DRUGS (1)
  1. ZOLGENSMA [Suspect]
     Active Substance: ONASEMNOGENE ABEPARVOVEC-XIOI
     Indication: SPINAL MUSCULAR ATROPHY
     Dosage: 38.5 ML
     Route: 042
     Dates: start: 20200324

REACTIONS (29)
  - Immunosuppression [Unknown]
  - Troponin increased [Unknown]
  - Weight increased [Unknown]
  - Hepatomegaly [Unknown]
  - Pneumonia [Recovering/Resolving]
  - Malnutrition [Unknown]
  - Sarcopenia [Unknown]
  - Scoliosis [Unknown]
  - Hepatic enzyme increased [Unknown]
  - Weight gain poor [Recovering/Resolving]
  - Thrombocytopenia [Recovered/Resolved]
  - White blood cell count decreased [Unknown]
  - Granulocyte count decreased [Unknown]
  - Granulocytopenia [Unknown]
  - Increased bronchial secretion [Recovered/Resolved]
  - Pyrexia [Recovered/Resolved]
  - Liver disorder [Not Recovered/Not Resolved]
  - Decreased appetite [Unknown]
  - Platelet count decreased [Unknown]
  - Aspartate aminotransferase increased [Unknown]
  - Alanine aminotransferase increased [Unknown]
  - Leukopenia [Recovering/Resolving]
  - Neutropenia [Unknown]
  - Dysphagia [Unknown]
  - Teething [Recovered/Resolved]
  - Infection susceptibility increased [Unknown]
  - C-reactive protein increased [Unknown]
  - Blood lactate dehydrogenase increased [Recovering/Resolving]
  - Weight decreased [Unknown]

NARRATIVE: CASE EVENT DATE: 2020
